FAERS Safety Report 7880696-2 (Version None)
Quarter: 2011Q4

REPORT INFORMATION
  Report Type: 
  Country: None (occurrence: None)
  Receive Date: 20111101
  Receipt Date: 20111018
  Transmission Date: 20120403
  Serious: Yes (Hospitalization, Other)
  Sender: FDA-Public Use
  Company Number: US-ELI_LILLY_AND_COMPANY-US200906003466

PATIENT
  Sex: Female

DRUGS (18)
  1. FORTEO [Suspect]
     Indication: OSTEOPOROSIS
     Dosage: 20 UG, QD
     Dates: start: 20090420, end: 20100401
  2. HYDROCHLOROTHIAZIDE [Concomitant]
     Dosage: 12.5 MG, UNKNOWN
  3. ACIDOPHILIS [Concomitant]
  4. FORTEO [Suspect]
     Dosage: 20 UG, QD
     Dates: start: 20100601
  5. VITAMIN TAB [Concomitant]
  6. VITAMIN B COMPLEX CAP [Concomitant]
  7. CALCIUM [Concomitant]
  8. LIPITOR [Concomitant]
  9. LANTUS [Concomitant]
  10. FISH OIL [Concomitant]
  11. PLAVIX [Concomitant]
  12. AMLODIPINE [Concomitant]
  13. HUMALOG [Concomitant]
  14. VITAMIN D [Concomitant]
  15. ASPIRIN [Concomitant]
  16. FLAXSEED OIL [Concomitant]
  17. FORTEO [Suspect]
     Dosage: 20 UG, QD
     Dates: end: 20110601
  18. ENBREL [Concomitant]
     Dosage: 50 MG, WEEKLY (1/W)

REACTIONS (8)
  - HYPOAESTHESIA [None]
  - ARTERIOSCLEROSIS [None]
  - RENAL IMPAIRMENT [None]
  - PARAESTHESIA [None]
  - CEREBROVASCULAR ACCIDENT [None]
  - BLOOD PARATHYROID HORMONE INCREASED [None]
  - DYSGEUSIA [None]
  - CARPAL TUNNEL SYNDROME [None]
